FAERS Safety Report 8097195-8 (Version None)
Quarter: 2012Q1

REPORT INFORMATION
  Report Type: 
  Country: None (occurrence: None)
  Receive Date: 20120128
  Receipt Date: 20110715
  Transmission Date: 20120608
  Serious: No
  Sender: FDA-Public Use
  Company Number: US-ABBOTT-11P-163-0839302-00

PATIENT
  Sex: Male

DRUGS (8)
  1. HUMIRA [Suspect]
     Indication: CROHN'S DISEASE
     Dosage: DAY 1
     Route: 058
     Dates: start: 20110624
  2. PREDNISONE TAB [Concomitant]
     Indication: INFLAMMATION
     Dosage: 2 PILLS DAILY IN MORNING
  3. CALCIUM [Concomitant]
     Indication: MINERAL SUPPLEMENTATION
     Dosage: DAILY
  4. VITAMIN D [Concomitant]
     Indication: PRODUCT USED FOR UNKNOWN INDICATION
     Dosage: DAILY
  5. ASACOL [Concomitant]
     Indication: PRODUCT USED FOR UNKNOWN INDICATION
  6. HUMIRA [Suspect]
     Dosage: DAY 15
     Route: 058
  7. EXFORGE [Concomitant]
     Indication: HYPERTENSION
     Dosage: 1 PILL DAILY
  8. MULTI-VITAMINS [Concomitant]
     Indication: PRODUCT USED FOR UNKNOWN INDICATION
     Dosage: DAILY

REACTIONS (2)
  - DRUG INEFFECTIVE [None]
  - PAIN [None]
